FAERS Safety Report 7167334-1 (Version None)
Quarter: 2010Q4

REPORT INFORMATION
  Report Type: 
  Country: None (occurrence: None)
  Receive Date: 20101216
  Receipt Date: 20101208
  Transmission Date: 20110411
  Serious: Yes (Other)
  Sender: FDA-Public Use
  Company Number: PK-B.I. PHARMACEUTICALS,INC./RIDGEFIELD-2010-BP-14387YA

PATIENT
  Age: 54 Year
  Sex: Male
  Weight: 80 kg

DRUGS (8)
  1. TAMSULOSIN HCL [Suspect]
     Indication: BENIGN PROSTATIC HYPERPLASIA
     Dosage: 0.4 MG
     Route: 065
  2. ISOFLURANE [Suspect]
     Indication: ANAESTHESIA
  3. NITROUS OXIDE [Suspect]
     Indication: ANAESTHESIA
  4. CEFAZOLIN [Concomitant]
     Route: 042
  5. THIOPENTAL SODIUM [Concomitant]
  6. MEPERIDINE HCL [Concomitant]
  7. ATRACURIUM BESYLATE [Concomitant]
  8. LACTATED RINGER (CALCIUM CHLORIDE ANHYDROUS, POTASSIUM CHLORIDE, SODIU [Concomitant]
     Route: 042

REACTIONS (2)
  - DRUG INTERACTION [None]
  - HYPOTENSION [None]
